FAERS Safety Report 15956416 (Version 1)
Quarter: 2019Q1

REPORT INFORMATION
  Report Type: Spontaneous
  Country: US (occurrence: US)
  Receive Date: 20190213
  Receipt Date: 20190213
  Transmission Date: 20190417
  Serious: No
  Sender: FDA-Public Use
  Company Number: US-PFIZER INC-2019060168

PATIENT
  Age: 54 Year
  Sex: Female

DRUGS (1)
  1. TOFACITINIB [Suspect]
     Active Substance: TOFACITINIB
     Indication: UVEITIS
     Dosage: 5 MG, 2X/DAY

REACTIONS (1)
  - Drug effective for unapproved indication [Unknown]
